FAERS Safety Report 22125150 (Version 1)
Quarter: 2023Q1

REPORT INFORMATION
  Report Type: Spontaneous
  Country: US (occurrence: US)
  Receive Date: 20230322
  Receipt Date: 20230322
  Transmission Date: 20230418
  Serious: No
  Sender: FDA-Public Use
  Company Number: US-SA-SAC20230321000119

PATIENT
  Age: 79 Year
  Sex: Female

DRUGS (14)
  1. DUPIXENT [Suspect]
     Active Substance: DUPILUMAB
     Indication: Dermatitis atopic
     Dosage: 300 MG QOW
     Route: 058
  2. BISOPROLOL [Concomitant]
     Active Substance: BISOPROLOL
  3. SALICYLIC ACID\TRIAMCINOLONE ACETONIDE [Concomitant]
     Active Substance: SALICYLIC ACID\TRIAMCINOLONE ACETONIDE
  4. LIPITOR [Concomitant]
     Active Substance: ATORVASTATIN CALCIUM
  5. MONTELUKAST [Concomitant]
     Active Substance: MONTELUKAST SODIUM
  6. OMEPRAZOLE [Concomitant]
     Active Substance: OMEPRAZOLE
  7. SPIRIVA [Concomitant]
     Active Substance: TIOTROPIUM BROMIDE MONOHYDRATE
  8. ALBUTEROL [Concomitant]
     Active Substance: ALBUTEROL
  9. ASPIRIN [Concomitant]
     Active Substance: ASPIRIN
  10. CODEINE SULFATE [Concomitant]
     Active Substance: CODEINE SULFATE
  11. DICLOFENAC [Concomitant]
     Active Substance: DICLOFENAC
  12. DROXIDOPA [Concomitant]
     Active Substance: DROXIDOPA
  13. NITROGLYCERIN [Concomitant]
     Active Substance: NITROGLYCERIN
  14. FLUDROCORTISONE [Concomitant]
     Active Substance: FLUDROCORTISONE

REACTIONS (8)
  - Visual impairment [Unknown]
  - Dry skin [Unknown]
  - Blood pressure fluctuation [Recovering/Resolving]
  - Skin fissures [Unknown]
  - Pruritus [Unknown]
  - Insomnia [Unknown]
  - Skin exfoliation [Unknown]
  - Dermatitis atopic [Unknown]

NARRATIVE: CASE EVENT DATE: 20230201
